FAERS Safety Report 5505152-8 (Version None)
Quarter: 2007Q4

REPORT INFORMATION
  Report Type: 
  Country: None (occurrence: None)
  Receive Date: 20071102
  Receipt Date: 20071023
  Transmission Date: 20080405
  Serious: Yes (Hospitalization)
  Sender: FDA-Public Use
  Company Number: US-AMGEN-STX249375

PATIENT
  Sex: Female

DRUGS (1)
  1. ENBREL [Suspect]
     Indication: RHEUMATOID ARTHRITIS
     Route: 065
     Dates: start: 20030101, end: 20070901

REACTIONS (4)
  - FALL [None]
  - LOWER LIMB FRACTURE [None]
  - MELANOCYTIC NAEVUS [None]
  - RHEUMATOID ARTHRITIS [None]
